FAERS Safety Report 10263029 (Version 2)
Quarter: 2014Q2

REPORT INFORMATION
  Report Type: Report from Study
  Country: US (occurrence: US)
  Receive Date: 20140626
  Receipt Date: 20140626
  Transmission Date: 20141212
  Serious: Yes (Death)
  Sender: FDA-Public Use
  Company Number: US-MYLANLABS-2013S1027431

PATIENT
  Age: 68 Year
  Sex: Female
  Weight: 75.75 kg

DRUGS (11)
  1. CLOZAPINE TABLETS [Suspect]
     Indication: SCHIZOAFFECTIVE DISORDER
     Route: 048
     Dates: end: 2013
  2. FLUPHENAZINE [Concomitant]
  3. LITHIUM CARBONATE [Concomitant]
  4. TEMAZEPAM [Concomitant]
  5. LORAZEPAM [Concomitant]
  6. LORATADINE [Concomitant]
  7. PRILOSEC [Concomitant]
  8. SIMVASTATIN [Concomitant]
  9. LISINOPRIL [Concomitant]
  10. VITAMIN D2 [Concomitant]
  11. VITAMIN D3 [Concomitant]

REACTIONS (1)
  - Death [Fatal]
